FAERS Safety Report 4641707-0 (Version None)
Quarter: 2005Q2

REPORT INFORMATION
  Report Type: 
  Country: None (occurrence: None)
  Receive Date: 20050421
  Receipt Date: 20050408
  Transmission Date: 20051028
  Serious: Yes (Hospitalization, Other)
  Sender: FDA-Public Use
  Company Number: US-AMGEN-US125933

PATIENT
  Sex: Female

DRUGS (19)
  1. SENSIPAR [Suspect]
     Indication: HYPERPARATHYROIDISM SECONDARY
     Route: 048
     Dates: start: 20041109, end: 20050328
  2. EPOETIN ALFA [Concomitant]
  3. VITAMIN B-12 [Concomitant]
  4. COMPAZINE [Concomitant]
  5. VENOFER [Concomitant]
  6. NITROGLYCERIN [Concomitant]
  7. TYLENOL (CAPLET) [Concomitant]
  8. BENADRYL [Concomitant]
  9. PHENERGAN [Concomitant]
  10. AMITRIPTYLINE HCL TAB [Concomitant]
  11. DIPHENOXYLATE [Concomitant]
  12. PROTONIX [Concomitant]
  13. VITAMIN B6 [Concomitant]
  14. REGLAN [Concomitant]
  15. CELEBREX [Concomitant]
  16. LOTENSIN [Concomitant]
  17. QUININE SULFATE [Concomitant]
  18. RENAGEL [Concomitant]
  19. FOLIC ACID [Concomitant]

REACTIONS (2)
  - BLOOD ALKALINE PHOSPHATASE INCREASED [None]
  - VASCULAR ACCESS COMPLICATION [None]
